FAERS Safety Report 4383760-8 (Version None)
Quarter: 2004Q2

REPORT INFORMATION
  Report Type: 
  Country: None (occurrence: None)
  Receive Date: 20040608
  Receipt Date: 20030703
  Transmission Date: 20050107
  Serious: Yes (Other)
  Sender: FDA-Public Use
  Company Number: 200312276BCC

PATIENT
  Age: 17 Year
  Sex: Female
  Weight: 58.9676 kg

DRUGS (1)
  1. ALEVE [Suspect]
     Indication: HEADACHE
     Dosage: 3300 MG, PRN, ORAL
     Route: 048
     Dates: start: 20030702, end: 20030703

REACTIONS (1)
  - VOMITING [None]
